FAERS Safety Report 9530686 (Version 1)
Quarter: 2013Q3

REPORT INFORMATION
  Report Type: Spontaneous
  Country: GB (occurrence: GB)
  Receive Date: 20130918
  Receipt Date: 20130918
  Transmission Date: 20140515
  Serious: Yes (Other)
  Sender: FDA-Public Use
  Company Number: GB-ROCHE-1274891

PATIENT
  Age: 30 Year
  Sex: Female
  Weight: 60 kg

DRUGS (2)
  1. CLONAZEPAM [Suspect]
     Indication: PRODUCT USED FOR UNKNOWN INDICATION
     Route: 048
  2. AMLODIPINE [Interacting]
     Indication: HYPERTENSION
     Route: 048
     Dates: start: 20130802, end: 20130807

REACTIONS (3)
  - Drug interaction [Unknown]
  - Sedation [Unknown]
  - Somnolence [Recovered/Resolved]
